FAERS Safety Report 22101945 (Version 2)
Quarter: 2023Q1

REPORT INFORMATION
  Report Type: Spontaneous
  Country: US (occurrence: US)
  Receive Date: 20230316
  Receipt Date: 20230327
  Transmission Date: 20230417
  Serious: No
  Sender: FDA-Public Use
  Company Number: US-JNJFOC-20230316725

PATIENT
  Sex: Female
  Weight: 99.880 kg

DRUGS (3)
  1. TYLENOL [Suspect]
     Active Substance: ACETAMINOPHEN
     Indication: Headache
     Route: 065
     Dates: start: 2023
  2. TRACLEER [Concomitant]
     Active Substance: BOSENTAN
     Indication: Pulmonary hypertension
     Dosage: TAKE ONE TABLET BY MOUTH TWICE DAILY
     Route: 048
     Dates: start: 20230116
  3. UPTRAVI [Concomitant]
     Active Substance: SELEXIPAG
     Indication: Product used for unknown indication
     Route: 065

REACTIONS (1)
  - Therapeutic product effect variable [Unknown]

NARRATIVE: CASE EVENT DATE: 20230101
